FAERS Safety Report 9541560 (Version 1)
Quarter: 2013Q3

REPORT INFORMATION
  Report Type: Report from Study
  Country: BR (occurrence: BR)
  Receive Date: 20130923
  Receipt Date: 20130923
  Transmission Date: 20140515
  Serious: Yes (Hospitalization)
  Sender: FDA-Public Use
  Company Number: BR-ROCHE-1278845

PATIENT
  Sex: Female

DRUGS (2)
  1. XOLAIR [Suspect]
     Indication: ASTHMA
     Dosage: 2 AMPOULES MONTHLY
     Route: 065
     Dates: start: 2008
  2. AZITHROMYCIN [Concomitant]

REACTIONS (2)
  - Malaise [Recovering/Resolving]
  - Bronchiectasis [Recovering/Resolving]
